FAERS Safety Report 4675715-0 (Version None)
Quarter: 2005Q2

REPORT INFORMATION
  Report Type: 
  Country: None (occurrence: None)
  Receive Date: 20050527
  Receipt Date: 20050214
  Transmission Date: 20051028
  Serious: No
  Sender: FDA-Public Use
  Company Number: US-BRISTOL-MYERS SQUIBB COMPANY-12861845

PATIENT
  Age: 59 Year
  Sex: Male
  Weight: 89 kg

DRUGS (2)
  1. ERBITUX [Suspect]
     Indication: COLON CANCER
     Dosage: ADMINISTERED OVER 2 HOURS.
     Route: 042
     Dates: start: 20050202, end: 20050330
  2. BENADRYL [Concomitant]

REACTIONS (1)
  - HYPERHIDROSIS [None]
